FAERS Safety Report 5241211-5 (Version None)
Quarter: 2007Q1

REPORT INFORMATION
  Report Type: 
  Country: None (occurrence: None)
  Receive Date: 20070220
  Receipt Date: 20070207
  Transmission Date: 20070707
  Serious: Yes (Hospitalization)
  Sender: FDA-Public Use
  Company Number: SE-BRISTOL-MYERS SQUIBB COMPANY-13680731

PATIENT
  Sex: Female

DRUGS (1)
  1. ENDOXAN [Suspect]

REACTIONS (6)
  - DYSPHAGIA [None]
  - DYSPNOEA [None]
  - MOUTH ULCERATION [None]
  - ORAL FUNGAL INFECTION [None]
  - PAIN [None]
  - PRODUCTIVE COUGH [None]
